FAERS Safety Report 16164044 (Version 1)
Quarter: 2019Q2

REPORT INFORMATION
  Report Type: Spontaneous
  Country: US (occurrence: US)
  Receive Date: 20190405
  Receipt Date: 20190405
  Transmission Date: 20190711
  Serious: Yes (Other)
  Sender: FDA-Public Use
  Company Number: US-BAYER-2019-064099

PATIENT
  Age: 38 Year
  Sex: Female

DRUGS (2)
  1. ACETYLSALICYLIC ACID (CARDIO) [Suspect]
     Active Substance: ASPIRIN
     Indication: ELECTROCARDIOGRAM ST SEGMENT ELEVATION
     Dosage: UNK
  2. METOPROLOL. [Suspect]
     Active Substance: METOPROLOL

REACTIONS (2)
  - Breech presentation [None]
  - Maternal exposure during pregnancy [None]
